FAERS Safety Report 25847827 (Version 1)
Quarter: 2025Q3

REPORT INFORMATION
  Report Type: Spontaneous
  Country: GB (occurrence: GB)
  Receive Date: 20250925
  Receipt Date: 20250925
  Transmission Date: 20251020
  Serious: Yes (Death)
  Sender: ALEXION PHARMACEUTICALS
  Company Number: GB-ASTRAZENECA-202509GBR020226GB

PATIENT
  Age: 22 Year
  Sex: Female

DRUGS (1)
  1. SOLIRIS [Suspect]
     Active Substance: ECULIZUMAB
     Indication: Sickle cell disease
     Route: 065

REACTIONS (2)
  - Death [Fatal]
  - Off label use [Unknown]
